FAERS Safety Report 7543538-0 (Version None)
Quarter: 2011Q2

REPORT INFORMATION
  Report Type: 
  Country: None (occurrence: None)
  Receive Date: 20110613
  Receipt Date: 20020610
  Transmission Date: 20111010
  Serious: Yes (Death, Hospitalization)
  Sender: FDA-Public Use
  Company Number: PHBS2002CL06940

PATIENT
  Age: 70 Year
  Sex: Male

DRUGS (1)
  1. EXELON [Suspect]
     Route: 048
     Dates: start: 20020403

REACTIONS (1)
  - MYOCARDIAL ISCHAEMIA [None]
